FAERS Safety Report 4550105-X (Version None)
Quarter: 2005Q1

REPORT INFORMATION
  Report Type: 
  Country: None (occurrence: None)
  Receive Date: 20050110
  Receipt Date: 20041228
  Transmission Date: 20050727
  Serious: Yes (Hospitalization, Congenital Anomaly, Other)
  Sender: FDA-Public Use
  Company Number: 2004121259

PATIENT
  Sex: Male

DRUGS (5)
  1. ZARONTIN [Suspect]
     Indication: EPILEPSY
  2. DILANTIN [Suspect]
     Indication: EPILEPSY
  3. PHENOBARBITAL TAB [Concomitant]
  4. CLOPIDOGREL BISULFATE [Concomitant]
  5. LORAZEPAM [Concomitant]

REACTIONS (5)
  - ACCIDENT [None]
  - ARTERIAL OCCLUSIVE DISEASE [None]
  - CARDIAC DISORDER [None]
  - LOSS OF CONSCIOUSNESS [None]
  - STENT OCCLUSION [None]
